FAERS Safety Report 10015778 (Version 1)
Quarter: 2014Q1

REPORT INFORMATION
  Report Type: Spontaneous
  Country: US (occurrence: US)
  Receive Date: 20140317
  Receipt Date: 20140317
  Transmission Date: 20141002
  Serious: Yes (Hospitalization)
  Sender: FDA-Public Use
  Company Number: US-GLAXOSMITHKLINE-A1056209A

PATIENT
  Age: 49 Year
  Sex: Female
  Weight: 46.4 kg

DRUGS (5)
  1. ZANTAC [Suspect]
     Indication: MIGRAINE
     Route: 065
  2. HYDROCHLOROTHIAZIDE [Suspect]
     Indication: HYPERTENSION
     Route: 065
  3. ZOLOFT [Concomitant]
     Indication: DEPRESSION
  4. ABILIFY [Concomitant]
     Indication: MANIA
  5. LORTAB [Concomitant]
     Indication: MIGRAINE

REACTIONS (2)
  - Drug ineffective [Unknown]
  - False positive investigation result [Unknown]
